FAERS Safety Report 4736564-8 (Version None)
Quarter: 2005Q3

REPORT INFORMATION
  Report Type: 
  Country: None (occurrence: None)
  Receive Date: 20050805
  Receipt Date: 20050805
  Transmission Date: 20060218
  Serious: No
  Sender: FDA-Public Use
  Company Number: None

PATIENT
  Sex: Female
  Weight: 90.7194 kg

DRUGS (2)
  1. PAXIL CR [Suspect]
     Indication: DEPRESSION
     Dosage: 37.5 DAILY ORAL
     Route: 048
     Dates: start: 20030121, end: 20050801
  2. PAXIL CR [Suspect]
     Indication: OBSESSIVE-COMPULSIVE DISORDER
     Dosage: 37.5 DAILY ORAL
     Route: 048
     Dates: start: 20030121, end: 20050801

REACTIONS (5)
  - ANGER [None]
  - DRUG WITHDRAWAL SYNDROME [None]
  - NIGHTMARE [None]
  - SEXUAL DYSFUNCTION [None]
  - SUICIDAL IDEATION [None]
